FAERS Safety Report 11376739 (Version 1)
Quarter: 2015Q3

REPORT INFORMATION
  Report Type: Spontaneous
  Country: GB (occurrence: GB)
  Receive Date: 20150813
  Receipt Date: 20150813
  Transmission Date: 20151125
  Serious: Yes (Life-Threatening, Hospitalization, Other)
  Sender: FDA-Public Use
  Company Number: GB-ASTRAZENECA-2015SE77744

PATIENT
  Age: 25 Year
  Sex: Male

DRUGS (21)
  1. DULOXETINE. [Suspect]
     Active Substance: DULOXETINE
     Route: 065
  2. DALTEPARIN [Concomitant]
     Active Substance: DALTEPARIN
  3. GENTAMICIN. [Concomitant]
     Active Substance: GENTAMICIN
  4. SALBUTAMOL [Concomitant]
     Active Substance: ALBUTEROL
     Dosage: AS REQUIRED
  5. CLOPIXOL [Suspect]
     Active Substance: ZUCLOPENTHIXOL ACETATE
     Indication: PERSONALITY DISORDER
     Route: 065
  6. LOPERAMIDE [Concomitant]
     Active Substance: LOPERAMIDE
  7. VANCOMYCIN [Concomitant]
     Active Substance: VANCOMYCIN
  8. QUETIAPINE [Suspect]
     Active Substance: QUETIAPINE
     Indication: PERSONALITY DISORDER
     Route: 048
  9. OLANZAPINE. [Suspect]
     Active Substance: OLANZAPINE
     Route: 065
  10. BECLOMETASONE [Concomitant]
     Active Substance: BECLOMETHASONE DIPROPIONATE
  11. ACETYLCYSTEINE. [Concomitant]
     Active Substance: ACETYLCYSTEINE
  12. CETIRIZINE [Concomitant]
     Active Substance: CETIRIZINE HYDROCHLORIDE
     Dosage: AS REQUIRED
  13. VENLAFAXINE [Suspect]
     Active Substance: VENLAFAXINE HYDROCHLORIDE
     Route: 065
  14. MEBEVERINE [Concomitant]
     Active Substance: MEBEVERINE
  15. MORPHINE [Concomitant]
     Active Substance: MORPHINE
     Dosage: AS REQUIRED
  16. METRONIDAZOLE. [Concomitant]
     Active Substance: METRONIDAZOLE
  17. HYOSCINE [Concomitant]
     Active Substance: SCOPOLAMINE
     Dosage: AS REQUIRED
  18. NALOXONE [Concomitant]
     Active Substance: NALOXONE
     Dosage: AS REQUIRED
  19. VENLAFAXINE [Suspect]
     Active Substance: VENLAFAXINE HYDROCHLORIDE
     Route: 065
  20. DEPAKOTE [Suspect]
     Active Substance: DIVALPROEX SODIUM
     Route: 048
  21. PARACETAMOL [Concomitant]
     Active Substance: ACETAMINOPHEN

REACTIONS (6)
  - Myositis [Not Recovered/Not Resolved]
  - Rhabdomyolysis [Not Recovered/Not Resolved]
  - Sepsis [Unknown]
  - Blood creatine phosphokinase increased [Unknown]
  - Intentional product use issue [Unknown]
  - Neuroleptic malignant syndrome [Unknown]

NARRATIVE: CASE EVENT DATE: 20150723
